FAERS Safety Report 15406151 (Version 4)
Quarter: 2018Q4

REPORT INFORMATION
  Report Type: Spontaneous
  Country: FI (occurrence: FI)
  Receive Date: 20180920
  Receipt Date: 20181129
  Transmission Date: 20190204
  Serious: Yes (Other)
  Sender: FDA-Public Use
  Company Number: FI-ROCHE-2184892

PATIENT
  Age: 46 Year
  Sex: Female

DRUGS (10)
  1. TRIMOPAN (FINLAND) [Concomitant]
     Route: 065
  2. LOSATRIX [Concomitant]
     Active Substance: LOSARTAN POTASSIUM
     Route: 065
  3. SIRDALUD [Concomitant]
     Active Substance: TIZANIDINE
     Dosage: 2-3 TIMES A DAY
     Route: 065
  4. TRIPTYL [Concomitant]
     Active Substance: AMITRIPTYLINE HYDROCHLORIDE
     Route: 065
  5. KETIPINOR [Concomitant]
     Active Substance: QUETIAPINE FUMARATE
     Dosage: 100 MG 4 TIMES A DAY AND 25 MG 3 TIMES A DAY
     Route: 065
  6. RISPERIDON [Concomitant]
     Active Substance: RISPERIDONE
     Dosage: 6 MG + 1 MG + 2 MG
     Route: 065
  7. DIAPAM (FINLAND) [Concomitant]
     Route: 065
  8. MELATONIN [Concomitant]
     Active Substance: MELATONIN
     Route: 065
  9. OCREVUS [Suspect]
     Active Substance: OCRELIZUMAB
     Indication: PRIMARY PROGRESSIVE MULTIPLE SCLEROSIS
     Route: 065
     Dates: start: 20180830
  10. TEMESTA (FINLAND) [Concomitant]
     Route: 065

REACTIONS (1)
  - Hepatic enzyme increased [Not Recovered/Not Resolved]

NARRATIVE: CASE EVENT DATE: 20180910
